FAERS Safety Report 12677623 (Version 2)
Quarter: 2016Q3

REPORT INFORMATION
  Report Type: Report from Study
  Country: US (occurrence: US)
  Receive Date: 20160823
  Receipt Date: 20160923
  Transmission Date: 20161109
  Serious: Yes (Death, Hospitalization)
  Sender: FDA-Public Use
  Company Number: US-ACTELION-A-NJ2016-138501

PATIENT
  Age: 73 Year
  Sex: Female

DRUGS (8)
  1. TYVASO [Concomitant]
     Active Substance: TREPROSTINIL
     Dosage: UNK
  2. COUMADIN [Concomitant]
     Active Substance: WARFARIN SODIUM
  3. OXYGEN. [Concomitant]
     Active Substance: OXYGEN
  4. REVATIO [Concomitant]
     Active Substance: SILDENAFIL CITRATE
  5. IMURAN [Concomitant]
     Active Substance: AZATHIOPRINE
  6. METOPROLOL. [Concomitant]
     Active Substance: METOPROLOL
  7. TRACLEER [Suspect]
     Active Substance: BOSENTAN
     Indication: PULMONARY HYPERTENSION
     Dosage: 125 MG, BID
     Route: 048
     Dates: start: 20031120, end: 20160909
  8. PLAQUENIL [Concomitant]
     Active Substance: HYDROXYCHLOROQUINE SULFATE

REACTIONS (17)
  - Systemic scleroderma [Unknown]
  - Peripheral vascular disorder [Unknown]
  - Leg amputation [Not Recovered/Not Resolved]
  - Cyanosis [Unknown]
  - Syncope [Unknown]
  - Diarrhoea [Unknown]
  - Dizziness [Unknown]
  - Hypotension [Unknown]
  - Condition aggravated [Unknown]
  - Intestinal stenosis [Unknown]
  - Decreased appetite [Unknown]
  - Respiratory failure [Fatal]
  - Peripheral swelling [Unknown]
  - Interstitial lung disease [Fatal]
  - Peripheral arterial occlusive disease [Unknown]
  - Presyncope [Unknown]
  - Gait disturbance [Unknown]
